FAERS Safety Report 4653018-8 (Version None)
Quarter: 2005Q2

REPORT INFORMATION
  Report Type: 
  Country: None (occurrence: None)
  Receive Date: 20050505
  Receipt Date: 20050422
  Transmission Date: 20051028
  Serious: Yes (Hospitalization)
  Sender: FDA-Public Use
  Company Number: US-JNJFOC-20050406429

PATIENT
  Sex: Female
  Weight: 58.97 kg

DRUGS (3)
  1. ORTHO EVRA [Suspect]
     Indication: CONTRACEPTION
     Route: 062
     Dates: start: 20030101, end: 20050219
  2. REMERON [Concomitant]
     Indication: DEPRESSION
  3. PREVACID [Concomitant]
     Indication: GASTRIC DISORDER

REACTIONS (2)
  - PNEUMONIA [None]
  - URINARY TRACT INFECTION [None]
